FAERS Safety Report 23545252 (Version 1)
Quarter: 2024Q1

REPORT INFORMATION
  Report Type: Spontaneous
  Country: TR (occurrence: TR)
  Receive Date: 20240220
  Receipt Date: 20240220
  Transmission Date: 20240409
  Serious: Yes (Other)
  Sender: FDA-Public Use
  Company Number: TR-002147023-NVSC2024TR034365

PATIENT
  Age: 59 Year
  Sex: Male

DRUGS (2)
  1. TRILEPTAL [Suspect]
     Active Substance: OXCARBAZEPINE
     Indication: Epilepsy
     Dosage: UNK
     Route: 065
  2. TEGRETOL [Suspect]
     Active Substance: CARBAMAZEPINE
     Indication: Epilepsy
     Dosage: UNK
     Route: 065

REACTIONS (3)
  - Seizure [Unknown]
  - Palpitations [Unknown]
  - Product supply issue [Unknown]
